FAERS Safety Report 13396839 (Version 1)
Quarter: 2017Q2

REPORT INFORMATION
  Report Type: Spontaneous
  Country: US (occurrence: US)
  Receive Date: 20170403
  Receipt Date: 20170403
  Transmission Date: 20170830
  Serious: No
  Sender: FDA-Public Use
  Company Number: US-009507513-1703USA005055

PATIENT
  Age: 47 Year
  Sex: Male

DRUGS (1)
  1. ZEPATIER [Suspect]
     Active Substance: ELBASVIR\GRAZOPREVIR
     Indication: HEPATITIS C
     Dosage: 1 TABLET (100/50 MG)/ONCE DAILY
     Route: 048
     Dates: start: 20161210

REACTIONS (1)
  - Viral load [Not Recovered/Not Resolved]

NARRATIVE: CASE EVENT DATE: 2017
